FAERS Safety Report 7387029-9 (Version None)
Quarter: 2011Q1

REPORT INFORMATION
  Report Type: 
  Country: None (occurrence: None)
  Receive Date: 20110331
  Receipt Date: 20110301
  Transmission Date: 20110831
  Serious: Yes (Hospitalization, Other)
  Sender: FDA-Public Use
  Company Number: US-BAYER-2010-003948

PATIENT
  Sex: Female
  Weight: 52 kg

DRUGS (1)
  1. YAZ [Suspect]
     Indication: PREMENSTRUAL SYNDROME
     Dosage: UNK
     Route: 048
     Dates: start: 20080901, end: 20090901

REACTIONS (3)
  - CHOLECYSTECTOMY [None]
  - PAIN [None]
  - INJURY [None]
